FAERS Safety Report 8347457 (Version 2)
Quarter: 2013Q1

REPORT INFORMATION
  Report Type: Spontaneous
  Country: US (occurrence: US)
  Receive Date: 20120120
  Receipt Date: 20130206
  Transmission Date: 20140127
  Serious: No
  Sender: FDA-Public Use
  Company Number: US-ALLERGAN-1109452US

PATIENT
  Sex: Female

DRUGS (4)
  1. RESTASIS? [Suspect]
     Indication: DRY EYE
     Dosage: 1 GTT, BID
     Route: 047
     Dates: start: 201003, end: 201106
  2. RESTASIS? [Suspect]
     Dosage: 2 GTT, BID FOR 3 DAYS
     Route: 047
     Dates: start: 201201
  3. ARTIFICIAL TEARS [Concomitant]
     Indication: DRY EYE
     Dosage: UNK
     Route: 047
  4. LOTOMAX [Concomitant]
     Indication: POSTOPERATIVE CARE
     Dosage: UNK
     Route: 047
     Dates: start: 201106

REACTIONS (3)
  - Procedural pain [Not Recovered/Not Resolved]
  - Therapeutic response decreased [Unknown]
  - Eye pain [Recovered/Resolved]
